FAERS Safety Report 24759806 (Version 4)
Quarter: 2024Q4

REPORT INFORMATION
  Report Type: Report from Study
  Country: US (occurrence: US)
  Receive Date: 20241220
  Receipt Date: 20241231
  Transmission Date: 20250114
  Serious: No
  Sender: SANOFI AVENTIS
  Company Number: US-SANOFI-02343419

PATIENT
  Age: 10 Year
  Sex: Female
  Weight: 27.22 kg

DRUGS (1)
  1. DUPILUMAB [Suspect]
     Active Substance: DUPILUMAB
     Indication: Eosinophilic oesophagitis
     Dosage: 200 MG, QOW
     Route: 058
     Dates: start: 20241119

REACTIONS (7)
  - Illness [Not Recovered/Not Resolved]
  - Eczema [Unknown]
  - Eosinophilic oesophagitis [Not Recovered/Not Resolved]
  - Injection site reaction [Unknown]
  - Product preparation error [Unknown]
  - Accidental exposure to product [Unknown]
  - Exposure via skin contact [Unknown]

NARRATIVE: CASE EVENT DATE: 20240101
